FAERS Safety Report 7122875-8 (Version None)
Quarter: 2010Q4

REPORT INFORMATION
  Report Type: 
  Country: None (occurrence: None)
  Receive Date: 20101124
  Receipt Date: 20101122
  Transmission Date: 20110411
  Serious: Yes (Life-Threatening, Other)
  Sender: FDA-Public Use
  Company Number: DE-ABBOTT-10P-062-0679297-00

PATIENT
  Sex: Female
  Weight: 113 kg

DRUGS (4)
  1. HUMIRA [Suspect]
     Indication: PSORIATIC ARTHROPATHY
     Route: 058
     Dates: start: 20100715, end: 20100928
  2. INFLUSPLIT [Concomitant]
     Indication: INFLUENZA
     Dosage: 1 INJECTION ONCE
     Dates: start: 20100902, end: 20100902
  3. ANTIHYPERTENSIVES [Concomitant]
     Indication: HYPERTENSION
  4. ANALGESIC [Concomitant]
     Indication: PRODUCT USED FOR UNKNOWN INDICATION

REACTIONS (2)
  - LYMPHADENOPATHY [None]
  - MONOCLONAL GAMMOPATHY [None]
